FAERS Safety Report 6357801-2 (Version None)
Quarter: 2009Q3

REPORT INFORMATION
  Report Type: 
  Country: None (occurrence: None)
  Receive Date: 20090916
  Receipt Date: 20090909
  Transmission Date: 20100115
  Serious: Yes (Hospitalization)
  Sender: FDA-Public Use
  Company Number: FR-AVENTIS-200913338FR

PATIENT
  Age: 64 Year
  Sex: Male

DRUGS (5)
  1. TELFAST                            /01314201/ [Suspect]
     Route: 048
     Dates: start: 20090715, end: 20090825
  2. EFFERALGAN                         /00020001/ [Suspect]
     Indication: ABDOMINAL PAIN
     Route: 048
     Dates: start: 20090821, end: 20090823
  3. ANTI-SMOKING AGENTS [Suspect]
     Route: 048
     Dates: start: 20090601, end: 20090815
  4. BUFLOMEDIL [Suspect]
     Route: 048
     Dates: start: 20090715, end: 20090825
  5. PLAVIX [Concomitant]
     Route: 048

REACTIONS (1)
  - CYTOLYTIC HEPATITIS [None]
